FAERS Safety Report 12615449 (Version 1)
Quarter: 2016Q3

REPORT INFORMATION
  Report Type: Spontaneous
  Country: US (occurrence: US)
  Receive Date: 20160802
  Receipt Date: 20160802
  Transmission Date: 20161109
  Serious: Yes (Other)
  Sender: FDA-Public Use
  Company Number: US-JNJFOC-20160726179

PATIENT

DRUGS (24)
  1. HYDROMORPHONE [Interacting]
     Active Substance: HYDROMORPHONE
     Indication: POST-TRAUMATIC STRESS DISORDER
     Route: 065
  2. ALPRAZOLAM. [Interacting]
     Active Substance: ALPRAZOLAM
     Indication: POST-TRAUMATIC STRESS DISORDER
     Route: 048
  3. CLORAZEPATE [Interacting]
     Active Substance: CLORAZEPATE DIPOTASSIUM
     Indication: POST-TRAUMATIC STRESS DISORDER
     Route: 048
  4. OXYMORPHONE [Interacting]
     Active Substance: OXYMORPHONE
     Indication: POST-TRAUMATIC STRESS DISORDER
     Route: 065
  5. PROPOXYPHENE. [Interacting]
     Active Substance: PROPOXYPHENE
     Indication: POST-TRAUMATIC STRESS DISORDER
     Route: 065
  6. MEPERIDINE HCL [Interacting]
     Active Substance: MEPERIDINE HYDROCHLORIDE
     Indication: POST-TRAUMATIC STRESS DISORDER
     Route: 065
  7. OXYCODONE [Interacting]
     Active Substance: OXYCODONE
     Indication: POST-TRAUMATIC STRESS DISORDER
     Route: 065
  8. BUTORPHANOL [Interacting]
     Active Substance: BUTORPHANOL
     Indication: POST-TRAUMATIC STRESS DISORDER
     Route: 065
  9. CHLORDIAZEPOXIDE. [Interacting]
     Active Substance: CHLORDIAZEPOXIDE
     Indication: POST-TRAUMATIC STRESS DISORDER
     Route: 048
  10. LORAZEPAM. [Interacting]
     Active Substance: LORAZEPAM
     Indication: POST-TRAUMATIC STRESS DISORDER
     Route: 048
  11. LEVORPHANOL [Interacting]
     Active Substance: LEVORPHANOL
     Indication: POST-TRAUMATIC STRESS DISORDER
     Route: 065
  12. FENTANYL. [Suspect]
     Active Substance: FENTANYL
     Indication: POST-TRAUMATIC STRESS DISORDER
     Route: 062
  13. HYDROCODONE [Interacting]
     Active Substance: HYDROCODONE
     Indication: POST-TRAUMATIC STRESS DISORDER
     Route: 065
  14. CLONAZEPAM. [Interacting]
     Active Substance: CLONAZEPAM
     Indication: POST-TRAUMATIC STRESS DISORDER
     Route: 048
  15. OXAZEPAM. [Interacting]
     Active Substance: OXAZEPAM
     Indication: POST-TRAUMATIC STRESS DISORDER
     Route: 048
  16. CODEINE [Interacting]
     Active Substance: CODEINE
     Indication: POST-TRAUMATIC STRESS DISORDER
     Route: 048
  17. MORPHINE [Interacting]
     Active Substance: MORPHINE
     Indication: POST-TRAUMATIC STRESS DISORDER
     Route: 065
  18. METHADONE [Interacting]
     Active Substance: METHADONE HYDROCHLORIDE
     Indication: POST-TRAUMATIC STRESS DISORDER
     Route: 065
  19. TEMAZEPAM. [Interacting]
     Active Substance: TEMAZEPAM
     Indication: POST-TRAUMATIC STRESS DISORDER
     Route: 048
  20. TRAMADOL HYDROCHLORIDE. [Suspect]
     Active Substance: TRAMADOL HYDROCHLORIDE
     Indication: POST-TRAUMATIC STRESS DISORDER
     Route: 065
  21. FENTANYL TRANSDERMAL SYSTEM [Suspect]
     Active Substance: FENTANYL
     Indication: POST-TRAUMATIC STRESS DISORDER
     Route: 065
  22. PENTAZOCINE [Interacting]
     Active Substance: PENTAZOCINE
     Indication: POST-TRAUMATIC STRESS DISORDER
     Route: 065
  23. FLURAZEPAM [Interacting]
     Active Substance: FLURAZEPAM\FLURAZEPAM HYDROCHLORIDE
     Indication: POST-TRAUMATIC STRESS DISORDER
     Route: 048
  24. TRIAZOLAM. [Interacting]
     Active Substance: TRIAZOLAM
     Indication: POST-TRAUMATIC STRESS DISORDER
     Route: 048

REACTIONS (2)
  - Adverse reaction [Unknown]
  - Drug interaction [Unknown]
